FAERS Safety Report 5743232-2 (Version None)
Quarter: 2008Q2

REPORT INFORMATION
  Report Type: 
  Country: None (occurrence: None)
  Receive Date: 20080519
  Receipt Date: 20080509
  Transmission Date: 20081010
  Serious: Yes (Congenital Anomaly, Other)
  Sender: FDA-Public Use
  Company Number: GB-ABBOTT-07P-167-0431102-00

PATIENT
  Sex: Male

DRUGS (1)
  1. VALPROIC ACID [Suspect]
     Indication: DRUG EXPOSURE DURING PREGNANCY
     Route: 064

REACTIONS (33)
  - ABNORMAL BEHAVIOUR [None]
  - AGGRESSION [None]
  - ASOCIAL BEHAVIOUR [None]
  - AUTISM [None]
  - BLOOD GLUCOSE DECREASED [None]
  - BODY TEMPERATURE DECREASED [None]
  - CLINODACTYLY [None]
  - COMMUNICATION DISORDER [None]
  - CONGENITAL EYELID MALFORMATION [None]
  - CONGENITAL NAIL DISORDER [None]
  - CONGENITAL NOSE MALFORMATION [None]
  - CONGENITAL ORAL MALFORMATION [None]
  - DEVELOPMENTAL DELAY [None]
  - DISTURBANCE IN ATTENTION [None]
  - DRUG EXPOSURE DURING PREGNANCY [None]
  - DYSMORPHISM [None]
  - DYSPHONIA [None]
  - EXPRESSIVE LANGUAGE DISORDER [None]
  - FEELING JITTERY [None]
  - FOETAL ANTICONVULSANT SYNDROME [None]
  - FOOT DEFORMITY [None]
  - GAIT DISTURBANCE [None]
  - HAEMANGIOMA [None]
  - HYPERACUSIS [None]
  - HYPOTHERMIA NEONATAL [None]
  - OBSESSIVE-COMPULSIVE DISORDER [None]
  - PERSONALITY DISORDER [None]
  - POOR QUALITY SLEEP [None]
  - POOR SUCKING REFLEX [None]
  - REPETITIVE SPEECH [None]
  - SPEECH DISORDER [None]
  - SPEECH DISORDER DEVELOPMENTAL [None]
  - THINKING ABNORMAL [None]
